FAERS Safety Report 25122108 (Version 1)
Quarter: 2025Q1

REPORT INFORMATION
  Report Type: Spontaneous
  Country: BR (occurrence: BR)
  Receive Date: 20250326
  Receipt Date: 20250326
  Transmission Date: 20250409
  Serious: Yes (Other)
  Sender: TAKEDA
  Company Number: BR-TAKEDA-2025TUS029143

PATIENT
  Age: 44 Year
  Sex: Male
  Weight: 115 kg

DRUGS (1)
  1. LISDEXAMFETAMINE DIMESYLATE [Suspect]
     Active Substance: LISDEXAMFETAMINE DIMESYLATE
     Indication: Attention deficit hyperactivity disorder
     Dosage: UNK, QD

REACTIONS (8)
  - Loss of consciousness [Recovered/Resolved]
  - Syncope [Recovered/Resolved]
  - Wrong technique in product usage process [Unknown]
  - Blood glucose increased [Unknown]
  - Malaise [Unknown]
  - Product administration interrupted [Unknown]
  - Product formulation issue [Unknown]
  - Anxiety [Unknown]

NARRATIVE: CASE EVENT DATE: 20250206
